FAERS Safety Report 25934984 (Version 2)
Quarter: 2025Q4

REPORT INFORMATION
  Report Type: Spontaneous
  Country: US (occurrence: US)
  Receive Date: 20251017
  Receipt Date: 20251104
  Transmission Date: 20260117
  Serious: No
  Sender: AJANTA PHARMA USA INC
  Company Number: US-AJANTA-2025AJA00137

PATIENT
  Age: 71 Year
  Sex: Female
  Weight: 130 kg

DRUGS (5)
  1. DULOXETINE [Suspect]
     Active Substance: DULOXETINE
     Indication: Anxiety
     Dates: start: 2024, end: 202509
  2. DULOXETINE [Suspect]
     Active Substance: DULOXETINE
     Indication: Depression
     Dates: start: 20250916, end: 2025
  3. Raytary [Concomitant]
     Dosage: 48.75-195 MG
  4. Carbidopa and levodopa USP [Concomitant]
     Dosage: 25-100 MG
  5. NEBIVOLOL [Concomitant]
     Active Substance: NEBIVOLOL

REACTIONS (8)
  - Sympathomimetic effect [Unknown]
  - Burning sensation [Unknown]
  - Dizziness [Unknown]
  - Paraesthesia [Unknown]
  - Heart rate increased [Unknown]
  - Anxiety [Unknown]
  - Feeling abnormal [Unknown]
  - Withdrawal syndrome [Unknown]

NARRATIVE: CASE EVENT DATE: 20250901
